FAERS Safety Report 9988723 (Version 2)
Quarter: 2014Q1

REPORT INFORMATION
  Report Type: Report from Study
  Country: CA (occurrence: CA)
  Receive Date: 20140310
  Receipt Date: 20140325
  Transmission Date: 20141002
  Serious: Yes (Other)
  Sender: FDA-Public Use
  Company Number: CA-ROCHE-1359603

PATIENT
  Age: 27 Year
  Sex: Female

DRUGS (6)
  1. RITUXAN [Suspect]
     Indication: PEMPHIGUS
     Dosage: FREQUENCY: DAY 1 AND 15
     Route: 042
     Dates: start: 20140303
  2. CELLCEPT [Suspect]
     Indication: PRODUCT USED FOR UNKNOWN INDICATION
     Route: 065
  3. ACETAMINOPHEN [Concomitant]
     Indication: PREMEDICATION
     Route: 048
     Dates: start: 20140303
  4. METHYLPREDNISOLONE [Concomitant]
     Indication: PREMEDICATION
     Route: 042
     Dates: start: 20140303
  5. PREDNISONE [Concomitant]
     Route: 065
  6. KENALOG IN ORABASE [Concomitant]

REACTIONS (2)
  - Infusion related reaction [Recovered/Resolved]
  - Off label use [Unknown]
